FAERS Safety Report 4816247-6 (Version None)
Quarter: 2005Q4

REPORT INFORMATION
  Report Type: 
  Country: None (occurrence: None)
  Receive Date: 20051026
  Receipt Date: 20051012
  Transmission Date: 20060501
  Serious: Yes (Life-Threatening)
  Sender: FDA-Public Use
  Company Number: 2005US001471

PATIENT
  Age: 55 Year
  Sex: Female

DRUGS (1)
  1. AMBISOME [Suspect]
     Indication: SYSTEMIC MYCOSIS
     Dosage: 50.00 MG, UID/QD, IV NOS
     Route: 042
     Dates: start: 20051001, end: 20051001

REACTIONS (3)
  - ARRHYTHMIA [None]
  - HYPOTENSION [None]
  - LOSS OF CONSCIOUSNESS [None]
